FAERS Safety Report 18088001 (Version 3)
Quarter: 2020Q3

REPORT INFORMATION
  Report Type: Report from Study
  Country: BR (occurrence: BR)
  Receive Date: 20200729
  Receipt Date: 20200810
  Transmission Date: 20201103
  Serious: Yes (Disabling, Other)
  Sender: FDA-Public Use
  Company Number: PHHY2018BR197789

PATIENT
  Sex: Female
  Weight: 92 kg

DRUGS (9)
  1. SANDOSTATIN LAR DEPOT [Suspect]
     Active Substance: OCTREOTIDE ACETATE
  2. SANDOSTATIN LAR DEPOT [Suspect]
     Active Substance: OCTREOTIDE ACETATE
  3. CABERGOLINE. [Concomitant]
     Active Substance: CABERGOLINE
     Dosage: 3 DF, QW (3 PER WEEK)
     Route: 065
     Dates: end: 20200722
  4. ACETYLCYSTEINE. [Concomitant]
     Active Substance: ACETYLCYSTEINE
     Indication: INFLUENZA
     Dosage: 600 MG, QD (1 SACHET OF 600 MG) (STARTED FROM MANY YEARS AGO)
     Route: 048
  5. EUTHYROX [Concomitant]
     Active Substance: LEVOTHYROXINE SODIUM
     Indication: THYROID DISORDER
     Dosage: 75 UG, QD (STARTED FROM MAY YEARS AGO)
     Route: 048
  6. SANDOSTATIN LAR DEPOT [Suspect]
     Active Substance: OCTREOTIDE ACETATE
     Indication: ACROMEGALY
     Dosage: 30 MG, QMO (1 AMPOULE OF 30 MG) (EVERY 28 DAY) (STARTED FROM 12 YEARS AGO)
     Route: 030
  7. PANTOPRAZOLE [Suspect]
     Active Substance: PANTOPRAZOLE
     Indication: GASTRIC DISORDER
     Dosage: 20 MG, QD (1 TABLET OF 20 MG) (STARTED FROM MANY YEARS AGO)
     Route: 048
  8. CABERGOLINE. [Concomitant]
     Active Substance: CABERGOLINE
     Indication: ACROMEGALY
     Dosage: 3 DF, QW (2 YEARS AGO)
     Route: 048
     Dates: end: 202002
  9. RENITEC [Concomitant]
     Indication: HYPERTENSION
     Dosage: 10 MG, QD (STARTED FROM MANY YEARS AGO)
     Route: 048

REACTIONS (9)
  - Hypoacusis [Not Recovered/Not Resolved]
  - Intracranial aneurysm [Unknown]
  - Memory impairment [Unknown]
  - Product dose omission issue [Unknown]
  - Meningioma benign [Unknown]
  - Anosmia [Not Recovered/Not Resolved]
  - Taste disorder [Not Recovered/Not Resolved]
  - Blindness [Unknown]
  - Eyelid ptosis [Unknown]
